FAERS Safety Report 4615922-6 (Version None)
Quarter: 2005Q1

REPORT INFORMATION
  Report Type: 
  Country: None (occurrence: None)
  Receive Date: 20050318
  Receipt Date: 20050307
  Transmission Date: 20050727
  Serious: Yes (Death)
  Sender: FDA-Public Use
  Company Number: 048-20785-05030362

PATIENT
  Age: 56 Year
  Sex: Female

DRUGS (9)
  1. THALIDOMIDE - PHARMION(THALIDOMIDE) (50 MILLIGRAM, CAPSULES) [Suspect]
     Indication: MULTIPLE MYELOMA
     Dosage: 200 MG, DAILY, ORAL
     Route: 048
     Dates: start: 20041102, end: 20050114
  2. DEXAMETHASONE [Suspect]
     Indication: MULTIPLE MYELOMA
     Dosage: 40 MG, DAILY, ORAL
     Route: 048
     Dates: start: 20041102, end: 20050114
  3. FENTANYL [Concomitant]
  4. FLUCONAZOLE [Concomitant]
  5. ZOLEDRONIC ACID (ZOLEDRONIC ACID) [Concomitant]
  6. CARBAMAZEPINE [Concomitant]
  7. ALLOPURINOL [Concomitant]
  8. INSULIN [Concomitant]
  9. VERAPAMIL [Concomitant]

REACTIONS (3)
  - HEPATITIS CHOLESTATIC [None]
  - HEPATORENAL FAILURE [None]
  - PNEUMONIA [None]
